FAERS Safety Report 20327057 (Version 1)
Quarter: 2022Q1

REPORT INFORMATION
  Report Type: Spontaneous
  Country: AU (occurrence: AU)
  Receive Date: 20220112
  Receipt Date: 20220112
  Transmission Date: 20220423
  Serious: Yes (Other)
  Sender: FDA-Public Use
  Company Number: AU-NOVARTISPH-NVSC2022AU004686

PATIENT
  Age: 60 Year

DRUGS (10)
  1. TAMOXIFEN [Suspect]
     Active Substance: TAMOXIFEN
     Indication: Invasive ductal breast carcinoma
     Dosage: UNK
     Route: 065
  2. LETROZOLE [Suspect]
     Active Substance: LETROZOLE
     Indication: Invasive ductal breast carcinoma
     Dosage: UNK
     Route: 065
     Dates: start: 2016
  3. ANASTROZOLE [Suspect]
     Active Substance: ANASTROZOLE
     Indication: Invasive ductal breast carcinoma
     Dosage: UNK
     Route: 065
     Dates: start: 20190530
  4. EXEMESTANE [Suspect]
     Active Substance: EXEMESTANE
     Indication: Invasive ductal breast carcinoma
     Dosage: UNK
     Route: 065
  5. EVEROLIMUS [Suspect]
     Active Substance: EVEROLIMUS
     Indication: Invasive ductal breast carcinoma
     Dosage: UNK
     Route: 065
  6. DOXORUBICIN [Suspect]
     Active Substance: DOXORUBICIN
     Indication: Invasive ductal breast carcinoma
     Dosage: UNK
     Route: 065
     Dates: start: 20200402
  7. PALBOCICLIB [Suspect]
     Active Substance: PALBOCICLIB
     Indication: Invasive ductal breast carcinoma
     Dosage: UNK
     Route: 065
     Dates: start: 20190618
  8. DENOSUMAB [Suspect]
     Active Substance: DENOSUMAB
     Indication: Invasive ductal breast carcinoma
     Dosage: UNK
     Route: 065
  9. ABRAXANE [Suspect]
     Active Substance: PACLITAXEL
     Indication: Invasive ductal breast carcinoma
     Dosage: UNK
     Route: 065
     Dates: start: 20210106
  10. DOXORUBICIN HYDROCHLORIDE [Concomitant]
     Active Substance: DOXORUBICIN HYDROCHLORIDE
     Indication: Invasive ductal breast carcinoma
     Dosage: UNK
     Route: 065

REACTIONS (12)
  - Spinal cord compression [Unknown]
  - Neuropathy peripheral [Unknown]
  - Breast cancer stage IV [Unknown]
  - Malignant neoplasm progression [Unknown]
  - Metastases to spine [Unknown]
  - Metastases to bone [Unknown]
  - Metastases to liver [Unknown]
  - Arthralgia [Unknown]
  - Back pain [Unknown]
  - Pathological fracture [Unknown]
  - Gene mutation [Unknown]
  - Ejection fraction decreased [Unknown]

NARRATIVE: CASE EVENT DATE: 20190301
